FAERS Safety Report 14742285 (Version 1)
Quarter: 2018Q2

REPORT INFORMATION
  Report Type: Spontaneous
  Country: US (occurrence: US)
  Receive Date: 20180410
  Receipt Date: 20180410
  Transmission Date: 20180711
  Serious: Yes (Life-Threatening)
  Sender: FDA-Public Use
  Company Number: US-FRESENIUS KABI-FK201804310

PATIENT
  Age: 2 Day
  Sex: Male

DRUGS (2)
  1. HEPARIN (MANUFACTURER UNKNOWN) [Suspect]
     Active Substance: HEPARIN SODIUM
     Route: 065
  2. HEPARIN (MANUFACTURER UNKNOWN) [Suspect]
     Active Substance: HEPARIN SODIUM
     Indication: ANTICOAGULANT THERAPY
     Route: 065

REACTIONS (2)
  - Brain midline shift [Unknown]
  - Cerebral haemorrhage [Recovered/Resolved]
